FAERS Safety Report 8521016-X (Version None)
Quarter: 2012Q3

REPORT INFORMATION
  Report Type: 
  Country: None (occurrence: None)
  Receive Date: 20120706
  Receipt Date: 20120621
  Transmission Date: 20120928
  Serious: Yes (Other)
  Sender: FDA-Public Use
  Company Number: DSU-2012-05230

PATIENT
  Age: 66 Year
  Sex: Female

DRUGS (1)
  1. OLMESARTAN MEDOXOMIL [Suspect]
     Indication: HYPERTENSION
     Route: 048

REACTIONS (4)
  - WEIGHT DECREASED [None]
  - GASTRITIS [None]
  - MALABSORPTION [None]
  - COLITIS [None]
